FAERS Safety Report 21331077 (Version 1)
Quarter: 2022Q3

REPORT INFORMATION
  Report Type: Spontaneous
  Country: US (occurrence: US)
  Receive Date: 20220914
  Receipt Date: 20220914
  Transmission Date: 20221027
  Serious: Yes (Other)
  Sender: FDA-Public Use
  Company Number: ENDG22-05414

PATIENT
  Sex: Male

DRUGS (1)
  1. ENDOCET [Suspect]
     Active Substance: ACETAMINOPHEN\OXYCODONE HYDROCHLORIDE
     Indication: Neuropathy peripheral
     Dosage: UNK UNKNOWN, UNKNOWN
     Route: 065

REACTIONS (3)
  - Myocardial infarction [Unknown]
  - Renal transplant failure [Unknown]
  - Acute pulmonary oedema [Unknown]

NARRATIVE: CASE EVENT DATE: 20190101
